FAERS Safety Report 6415686-X (Version None)
Quarter: 2009Q4

REPORT INFORMATION
  Report Type: 
  Country: None (occurrence: None)
  Receive Date: 20091021
  Receipt Date: 20091007
  Transmission Date: 20100525
  Serious: Yes (Other)
  Sender: FDA-Public Use
  Company Number: NL-JNJFOC-20091004828

PATIENT
  Age: 51 Year
  Sex: Male

DRUGS (2)
  1. DACOGEN [Suspect]
     Indication: ACUTE MYELOID LEUKAEMIA
     Dosage: 125 MG/M2, 2 IN 1 DAY, INTRAVENOUS
     Route: 042
  2. AMSACRINE (AMSACRINE) UNSPECIFIED) [Suspect]
     Indication: ACUTE MYELOID LEUKAEMIA
     Dosage: 120 MG/M2, INTRAVENOUS
     Route: 042

REACTIONS (1)
  - PERITONITIS [None]
